FAERS Safety Report 8610600-0 (Version None)
Quarter: 2012Q3

REPORT INFORMATION
  Report Type: 
  Country: None (occurrence: None)
  Receive Date: 20120822
  Receipt Date: 20120820
  Transmission Date: 20120928
  Serious: Yes (Death, Hospitalization, Other)
  Sender: FDA-Public Use
  Company Number: PHHY2012JP068244

PATIENT
  Age: 72 Year
  Sex: Male

DRUGS (1)
  1. AFINITOR [Suspect]
     Indication: RENAL CELL CARCINOMA
     Route: 048
     Dates: start: 20100101, end: 20100601

REACTIONS (9)
  - CACHEXIA [None]
  - INTERSTITIAL LUNG DISEASE [None]
  - NEOPLASM PROGRESSION [None]
  - ASCITES [None]
  - NEOPLASM MALIGNANT [None]
  - CARDIAC FAILURE [None]
  - CARDIAC VALVE DISEASE [None]
  - ASTHENIA [None]
  - METASTASES TO PERITONEUM [None]
